FAERS Safety Report 23134879 (Version 1)
Quarter: 2023Q4

REPORT INFORMATION
  Report Type: Other
  Country: None (occurrence: TR)
  Receive Date: 20231101
  Receipt Date: 20231101
  Transmission Date: 20240109
  Serious: Yes (Hospitalization, Other)
  Sender: FDA-Public Use
  Company Number: TR-Eywa Pharma Inc.-2147717

PATIENT
  Age: 35 Year
  Sex: Male

DRUGS (1)
  1. OXYBUTYNIN CHLORIDE [Suspect]
     Active Substance: OXYBUTYNIN CHLORIDE
     Indication: Euphoric mood
     Route: 065

REACTIONS (4)
  - Substance-induced psychotic disorder [Recovered/Resolved]
  - Drug abuse [Unknown]
  - Overdose [Unknown]
  - Product use in unapproved indication [Unknown]
